FAERS Safety Report 12579150 (Version 1)
Quarter: 2016Q3

REPORT INFORMATION
  Report Type: Report from Study
  Country: FR (occurrence: FR)
  Receive Date: 20160721
  Receipt Date: 20160721
  Transmission Date: 20161109
  Serious: Yes (Death, Other)
  Sender: FDA-Public Use
  Company Number: FR-CELGENEUS-FRA-2016072244

PATIENT

DRUGS (1)
  1. REVLIMID [Suspect]
     Active Substance: LENALIDOMIDE
     Indication: PLASMA CELL MYELOMA
     Route: 048

REACTIONS (7)
  - Plasma cell myeloma [Unknown]
  - Adverse event [Unknown]
  - Death [Fatal]
  - Embolism [Unknown]
  - Haematotoxicity [Unknown]
  - Fatigue [Unknown]
  - Therapy non-responder [Unknown]
